FAERS Safety Report 7475798-9 (Version None)
Quarter: 2011Q2

REPORT INFORMATION
  Report Type: 
  Country: None (occurrence: None)
  Receive Date: 20110512
  Receipt Date: 20110509
  Transmission Date: 20111010
  Serious: Yes (Death, Other)
  Sender: FDA-Public Use
  Company Number: GR-PFIZER INC-2011099411

PATIENT
  Age: 78 Year
  Sex: Male

DRUGS (2)
  1. MEROPENEM [Suspect]
     Indication: ANTIBIOTIC THERAPY
     Dosage: UNKNOWN
  2. PIPERACILLIN AND TAZOBACTAM [Suspect]
     Indication: ANTIBIOTIC THERAPY
     Dosage: UNK

REACTIONS (8)
  - HEPATIC HAEMATOMA [None]
  - HAEMOTHORAX [None]
  - MULTI-ORGAN FAILURE [None]
  - RESPIRATORY DISTRESS [None]
  - HAEMODYNAMIC INSTABILITY [None]
  - ATRIAL FIBRILLATION [None]
  - SEPTIC SHOCK [None]
  - RESPIRATORY TRACT INFECTION [None]
